FAERS Safety Report 7463509-2 (Version None)
Quarter: 2011Q2

REPORT INFORMATION
  Report Type: 
  Country: None (occurrence: None)
  Receive Date: 20110506
  Receipt Date: 20110502
  Transmission Date: 20111010
  Serious: Yes (Hospitalization)
  Sender: FDA-Public Use
  Company Number: PHHO2009TR09975

PATIENT
  Sex: Male
  Weight: 98 kg

DRUGS (6)
  1. LIPITOR [Concomitant]
     Indication: HYPERLIPIDAEMIA
     Dosage: 10 MG, /DAY
     Dates: start: 20090902, end: 20090909
  2. METHYLPREDNISOLONE [Concomitant]
     Indication: NEPHROTIC SYNDROME
     Dosage: 48 MG, BID
     Dates: start: 20090905, end: 20090909
  3. STEROIDS NOS [Concomitant]
     Indication: NEPHROTIC SYNDROME
     Dosage: 1 G,/DAY
     Dates: start: 20090902, end: 20090904
  4. ALLOPURINOL [Concomitant]
  5. ILARIS [Suspect]
     Indication: GOUT
     Dosage: 200 MG, ONCE/SINGLE
     Dates: start: 20090714, end: 20090730
  6. KETOSTERIL [Concomitant]
     Indication: RENAL FAILURE CHRONIC
     Dosage: 7200 MG, /DAY
     Dates: start: 20090902, end: 20090909

REACTIONS (4)
  - HAEMATURIA [None]
  - RENAL FAILURE ACUTE [None]
  - NEPHROTIC SYNDROME [None]
  - CONCOMITANT DISEASE PROGRESSION [None]
